FAERS Safety Report 15729814 (Version 1)
Quarter: 2018Q4

REPORT INFORMATION
  Report Type: Spontaneous
  Country: IT (occurrence: IT)
  Receive Date: 20181217
  Receipt Date: 20181217
  Transmission Date: 20190205
  Serious: Yes (Other)
  Sender: FDA-Public Use
  Company Number: IT-PFIZER INC-2018513659

PATIENT
  Age: 58 Year
  Sex: Female

DRUGS (1)
  1. PACLITAXEL. [Suspect]
     Active Substance: PACLITAXEL
     Indication: BREAST CANCER
     Dosage: 155.2 MG, CYCLIC
     Route: 042
     Dates: start: 20180706, end: 20181109

REACTIONS (2)
  - Epistaxis [Unknown]
  - Neutropenia [Unknown]

NARRATIVE: CASE EVENT DATE: 20181116
